FAERS Safety Report 16116042 (Version 1)
Quarter: 2019Q1

REPORT INFORMATION
  Report Type: Spontaneous
  Country: US (occurrence: US)
  Receive Date: 20190326
  Receipt Date: 20190326
  Transmission Date: 20190418
  Serious: Yes (Hospitalization)
  Sender: FDA-Public Use
  Company Number: US-STRIDES ARCOLAB LIMITED-2019SP001282

PATIENT
  Age: 16 Year
  Sex: Female

DRUGS (2)
  1. LIDOCAINE. [Suspect]
     Active Substance: LIDOCAINE
     Indication: ANALGESIC THERAPY
     Dosage: UNK
     Route: 042
  2. PROPOFOL. [Suspect]
     Active Substance: PROPOFOL
     Indication: SEDATION
     Dosage: UNK
     Route: 065

REACTIONS (2)
  - Anaphylactic reaction [Unknown]
  - Swollen tongue [Unknown]
